FAERS Safety Report 7986045-3 (Version None)
Quarter: 2011Q4

REPORT INFORMATION
  Report Type: 
  Country: None (occurrence: None)
  Receive Date: 20111216
  Receipt Date: 20110318
  Transmission Date: 20120403
  Serious: Yes (Hospitalization)
  Sender: FDA-Public Use
  Company Number: US-BRISTOL-MYERS SQUIBB COMPANY-15476534

PATIENT
  Sex: Male

DRUGS (2)
  1. ZYPREXA [Suspect]
  2. ABILIFY [Suspect]

REACTIONS (1)
  - OVERDOSE [None]
